FAERS Safety Report 6399559-7 (Version None)
Quarter: 2009Q4

REPORT INFORMATION
  Report Type: 
  Country: None (occurrence: None)
  Receive Date: 20091014
  Receipt Date: 20091005
  Transmission Date: 20100525
  Serious: Yes (Hospitalization)
  Sender: FDA-Public Use
  Company Number: US-ASTRAZENECA-2009SE08090

PATIENT
  Age: 70 Year
  Sex: Female
  Weight: 51.7 kg

DRUGS (14)
  1. NEXIUM [Suspect]
     Route: 048
     Dates: start: 20090415, end: 20090425
  2. ATENOLOL [Concomitant]
     Indication: HYPERTENSION
     Route: 048
  3. SIMVASTATIN [Concomitant]
     Indication: BLOOD CHOLESTEROL INCREASED
     Route: 048
  4. BONIVA [Concomitant]
     Indication: RESORPTION BONE INCREASED
     Dosage: 2 TABLETS IN THE MORNING
     Route: 048
  5. AMBIEN CR [Concomitant]
  6. QUININE SULFATE [Concomitant]
  7. LORTAB [Concomitant]
     Dosage: 5/500 TWICE DAILY AS NEEDED
  8. CITRACAL [Concomitant]
  9. CHLORTHALIDONE [Concomitant]
  10. DEXCHLORPHENIRAMINE [Concomitant]
  11. ULTRAM ER [Concomitant]
  12. PHENERGAN [Concomitant]
  13. K-DUR [Concomitant]
  14. DILTIAZEM [Concomitant]

REACTIONS (1)
  - DRUG RASH WITH EOSINOPHILIA AND SYSTEMIC SYMPTOMS [None]
